FAERS Safety Report 9410843 (Version 4)
Quarter: 2014Q2

REPORT INFORMATION
  Report Type: Spontaneous
  Country: US (occurrence: US)
  Receive Date: 20130719
  Receipt Date: 20140429
  Transmission Date: 20141212
  Serious: Yes (Hospitalization)
  Sender: FDA-Public Use
  Company Number: US-B.I. PHARMACEUTICALS,INC./RIDGEFIELD-2013-BI-18910BP

PATIENT
  Age: 72 Year
  Sex: Female
  Weight: 53.98 kg

DRUGS (19)
  1. PRADAXA [Suspect]
     Indication: CEREBROVASCULAR ACCIDENT PROPHYLAXIS
     Dosage: 300 MG
     Route: 048
     Dates: start: 20110801, end: 20110813
  2. PRADAXA [Suspect]
     Indication: THROMBOSIS PROPHYLAXIS
  3. PRADAXA [Suspect]
     Indication: ANTICOAGULANT THERAPY
  4. TRAZODONE HCL [Concomitant]
     Dosage: 50 MG
     Route: 048
     Dates: start: 20110617
  5. VICODIN [Concomitant]
     Route: 048
     Dates: start: 20100301
  6. LOPRESSOR [Concomitant]
     Dosage: 100 MG
     Route: 048
     Dates: start: 20090707
  7. TAVIST ND [Concomitant]
     Dosage: 10 MG
     Route: 048
     Dates: start: 20090423
  8. PRINIVIL [Concomitant]
     Dosage: 5 MG
     Route: 048
     Dates: start: 20090423
  9. CITRACAL + D [Concomitant]
     Route: 048
     Dates: start: 20090423
  10. SLOW MAG [Concomitant]
     Dosage: 128 MG
     Route: 048
     Dates: start: 20090423
  11. COREG [Concomitant]
     Dosage: 12.5 MG
     Route: 048
     Dates: start: 20090423
  12. LANOXIN [Concomitant]
     Dosage: 250 MCG
     Route: 048
     Dates: start: 20090423
  13. VITAMIN E [Concomitant]
     Route: 048
     Dates: start: 20090423
  14. NIASPAN [Concomitant]
     Dosage: 1000 MG
     Route: 048
     Dates: start: 20090423
  15. LIPITOR [Concomitant]
     Dosage: 10 MG
     Route: 048
     Dates: start: 20090423
  16. ECOTRIN [Concomitant]
     Dosage: 325 MG
     Route: 048
     Dates: start: 20090423
  17. VITAMIN C [Concomitant]
     Dosage: 1000 MG
     Route: 048
     Dates: start: 20090423
  18. ASPIRIN [Concomitant]
     Route: 065
  19. CETIRIZINE HYDROCHLORIDE [Concomitant]
     Indication: ANTIALLERGIC THERAPY
     Route: 065

REACTIONS (5)
  - Gastrointestinal haemorrhage [Recovered/Resolved]
  - Anaemia [Unknown]
  - Coagulopathy [Unknown]
  - Epistaxis [Unknown]
  - Mouth haemorrhage [Unknown]
